FAERS Safety Report 4535600-1 (Version None)
Quarter: 2004Q4

REPORT INFORMATION
  Report Type: 
  Country: None (occurrence: None)
  Receive Date: 20041214
  Receipt Date: 20040902
  Transmission Date: 20050328
  Serious: No
  Sender: FDA-Public Use
  Company Number: USA040977244

PATIENT
  Age: 61 Year
  Sex: Male

DRUGS (4)
  1. CIALIS [Suspect]
     Indication: NERVOUS SYSTEM DISORDER
     Dosage: 5 MG
     Dates: start: 20040827
  2. CIALIS [Suspect]
     Indication: POST PROCEDURAL COMPLICATION
     Dosage: 5 MG
     Dates: start: 20040827
  3. CIALIS [Suspect]
     Indication: PROSTATECTOMY
     Dosage: 5 MG
     Dates: start: 20040827
  4. ZOLEDRONIC ACID [Concomitant]

REACTIONS (4)
  - BACK PAIN [None]
  - HEADACHE [None]
  - NAUSEA [None]
  - THERAPEUTIC RESPONSE DECREASED [None]
